FAERS Safety Report 18807790 (Version 1)
Quarter: 2021Q1

REPORT INFORMATION
  Report Type: Spontaneous
  Country: US (occurrence: US)
  Receive Date: 20210129
  Receipt Date: 20210129
  Transmission Date: 20210419
  Serious: No
  Sender: FDA-Public Use
  Company Number: None

PATIENT
  Age: 51 Year
  Sex: Male
  Weight: 89.9 kg

DRUGS (1)
  1. CISPLATIN (119875) [Suspect]
     Active Substance: CISPLATIN
     Dates: end: 20200630

REACTIONS (3)
  - White blood cell disorder [None]
  - Lymphocyte count abnormal [None]
  - Neutropenia [None]

NARRATIVE: CASE EVENT DATE: 20200629
